FAERS Safety Report 5532056-7 (Version None)
Quarter: 2007Q4

REPORT INFORMATION
  Report Type: 
  Country: None (occurrence: None)
  Receive Date: 20071203
  Receipt Date: 20071130
  Transmission Date: 20080405
  Serious: Yes (Other)
  Sender: FDA-Public Use
  Company Number: B0493006A

PATIENT
  Age: 24 Year
  Sex: Female

DRUGS (1)
  1. VALTREX [Suspect]
     Indication: GENITAL HERPES
     Dosage: 500MG PER DAY
     Route: 048
     Dates: start: 20070913, end: 20070913

REACTIONS (7)
  - ABDOMINAL PAIN UPPER [None]
  - ANAPHYLACTOID REACTION [None]
  - ECZEMA [None]
  - ILL-DEFINED DISORDER [None]
  - LIP SWELLING [None]
  - NAUSEA [None]
  - VOMITING [None]
